FAERS Safety Report 4489842-4 (Version None)
Quarter: 2004Q4

REPORT INFORMATION
  Report Type: 
  Country: None (occurrence: None)
  Receive Date: 20041101
  Receipt Date: 20041021
  Transmission Date: 20050328
  Serious: Yes (Hospitalization, Disabling, Other)
  Sender: FDA-Public Use
  Company Number: US-MERCK-0410USA03393

PATIENT
  Age: 72 Year
  Sex: Female

DRUGS (15)
  1. VIOXX [Suspect]
     Indication: PAIN MANAGEMENT
     Route: 048
     Dates: start: 20040201, end: 20040601
  2. SINGULAIR [Concomitant]
     Route: 048
  3. ALLEGRA [Concomitant]
     Route: 065
  4. DIOVAN [Concomitant]
     Route: 065
  5. INSULIN [Concomitant]
     Route: 065
  6. HYDRODIURIL [Concomitant]
     Route: 048
  7. NEXIUM [Concomitant]
     Route: 065
  8. ASPIRIN [Concomitant]
     Route: 065
  9. FOSAMAX [Concomitant]
     Route: 048
  10. GLUCOPHAGE [Concomitant]
     Route: 065
  11. DETROL [Concomitant]
     Route: 065
  12. ATENOLOL [Concomitant]
     Route: 065
  13. VERELAN [Concomitant]
     Route: 065
  14. LIPITOR [Concomitant]
     Route: 065
  15. METFORMIN [Concomitant]
     Route: 065

REACTIONS (1)
  - CEREBROVASCULAR ACCIDENT [None]
